FAERS Safety Report 7674769-7 (Version None)
Quarter: 2011Q3

REPORT INFORMATION
  Report Type: 
  Country: None (occurrence: None)
  Receive Date: 20110810
  Receipt Date: 20081129
  Transmission Date: 20111222
  Serious: Yes (Hospitalization, Other)
  Sender: FDA-Public Use
  Company Number: PL-VIIV HEALTHCARE LIMITED-B0655210A

PATIENT
  Sex: Male
  Weight: 90 kg

DRUGS (3)
  1. MARAVIROC [Suspect]
     Indication: HIV INFECTION
     Dosage: 300MG TWICE PER DAY
     Dates: start: 20050809
  2. EPIVIR [Concomitant]
     Indication: HIV INFECTION
     Route: 048
     Dates: start: 20051220
  3. VIREAD [Concomitant]
     Indication: HIV INFECTION
     Dates: start: 20051220

REACTIONS (1)
  - SQUAMOUS CELL CARCINOMA [None]
